FAERS Safety Report 5280315-8 (Version None)
Quarter: 2007Q1

REPORT INFORMATION
  Report Type: 
  Country: None (occurrence: None)
  Receive Date: 20070329
  Receipt Date: 20070323
  Transmission Date: 20070707
  Serious: Yes (Hospitalization)
  Sender: FDA-Public Use
  Company Number: DK-GLAXOSMITHKLINE-B0463916A

PATIENT
  Age: 72 Year

DRUGS (2)
  1. TOPOTECAN [Suspect]
     Dosage: 3.2MG PER DAY
     Route: 042
     Dates: start: 20061218, end: 20070228
  2. CISPLATIN [Suspect]
     Dosage: 80MG PER DAY
     Route: 042
     Dates: start: 20061218, end: 20070228

REACTIONS (5)
  - DEHYDRATION [None]
  - DYSPHAGIA [None]
  - HYPOMAGNESAEMIA [None]
  - ILL-DEFINED DISORDER [None]
  - ORAL FUNGAL INFECTION [None]
